FAERS Safety Report 8313925-1 (Version None)
Quarter: 2012Q2

REPORT INFORMATION
  Report Type: 
  Country: None (occurrence: None)
  Receive Date: 20120426
  Receipt Date: 20120426
  Transmission Date: 20120825
  Serious: Yes (Other)
  Sender: FDA-Public Use
  Company Number: None

PATIENT
  Age: 22 Year
  Sex: Female
  Weight: 56.699 kg

DRUGS (1)
  1. LO/OVRAL [Suspect]
     Indication: CONTRACEPTION
     Dosage: 28 PILLS
     Route: 050
     Dates: start: 20080101, end: 20120205

REACTIONS (3)
  - PREGNANCY ON ORAL CONTRACEPTIVE [None]
  - MATERNAL EXPOSURE DURING PREGNANCY [None]
  - PRODUCT QUALITY ISSUE [None]
